FAERS Safety Report 16775962 (Version 3)
Quarter: 2019Q3

REPORT INFORMATION
  Report Type: Spontaneous
  Country: US (occurrence: US)
  Receive Date: 20190905
  Receipt Date: 20190919
  Transmission Date: 20191005
  Serious: Yes (Other)
  Sender: FDA-Public Use
  Company Number: US-PFIZER INC-2019352360

PATIENT
  Age: 29 Year
  Sex: Female

DRUGS (3)
  1. SYNAREL [Suspect]
     Active Substance: NAFARELIN ACETATE
     Indication: ENDOMETRIOSIS
     Dosage: 0.2 MG, 2X/DAY (ALTERNATING NOSTRILS WITH MORNING AND EVERNING DOSES) (0.2 MG PER SPRAY)/8ML BOTLLE
     Route: 055
  2. SYNAREL [Suspect]
     Active Substance: NAFARELIN ACETATE
     Indication: PELVIC PAIN
  3. NORETHISTERONE [Concomitant]
     Active Substance: NORETHINDRONE
     Indication: ADJUVANT THERAPY
     Dosage: 5 MG, DAILY

REACTIONS (3)
  - Stress [Unknown]
  - Haemorrhage [Unknown]
  - Pain [Unknown]
